FAERS Safety Report 16200356 (Version 1)
Quarter: 2019Q2

REPORT INFORMATION
  Report Type: Spontaneous
  Country: IN (occurrence: IN)
  Receive Date: 20190416
  Receipt Date: 20190416
  Transmission Date: 20190711
  Serious: No
  Sender: FDA-Public Use
  Company Number: IN-LUPIN LIMITED-2018-02969

PATIENT
  Age: 21 Year
  Sex: Male

DRUGS (1)
  1. R-CIN SUSP 100 MG/5 ML [Suspect]
     Active Substance: RIFAMPIN
     Indication: TUBERCULOSIS
     Dosage: 5 ML, BID
     Route: 048
     Dates: start: 20180407

REACTIONS (1)
  - Chromaturia [Recovering/Resolving]

NARRATIVE: CASE EVENT DATE: 20180407
